FAERS Safety Report 8439641-3 (Version None)
Quarter: 2012Q2

REPORT INFORMATION
  Report Type: 
  Country: None (occurrence: None)
  Receive Date: 20120615
  Receipt Date: 20120611
  Transmission Date: 20120825
  Serious: Yes (Other)
  Sender: FDA-Public Use
  Company Number: BR-PFIZER INC-2012140980

PATIENT
  Age: 63 Year
  Sex: Male
  Weight: 87 kg

DRUGS (2)
  1. SUTENT [Suspect]
     Indication: RENAL CANCER
     Dosage: 50 MG, 1X/DAY
     Route: 048
     Dates: start: 20120525
  2. LEVOTHYROXINE SODIUM [Concomitant]
     Dosage: 50 MG, 1 TABLET (FREQUENCY UNSPECIFIED)

REACTIONS (4)
  - PHARYNGITIS [None]
  - AGEUSIA [None]
  - SKIN DEPIGMENTATION [None]
  - IMMUNODEFICIENCY [None]
